FAERS Safety Report 23863667 (Version 3)
Quarter: 2024Q2

REPORT INFORMATION
  Report Type: Spontaneous
  Country: US (occurrence: US)
  Receive Date: 20240516
  Receipt Date: 20240624
  Transmission Date: 20240716
  Serious: No
  Sender: FDA-Public Use
  Company Number: US-Calliditas-2024CAL00709

PATIENT
  Age: 26 Year
  Sex: Female
  Weight: 107.3 kg

DRUGS (1)
  1. TARPEYO [Suspect]
     Active Substance: BUDESONIDE
     Indication: IgA nephropathy
     Route: 048
     Dates: start: 20240329

REACTIONS (8)
  - Muscle spasms [Recovering/Resolving]
  - Nasopharyngitis [Recovered/Resolved]
  - Infection susceptibility increased [Unknown]
  - Ear infection [Unknown]
  - Streptococcal infection [Unknown]
  - Hypertension [Unknown]
  - Dizziness postural [Unknown]
  - Condition aggravated [Unknown]

NARRATIVE: CASE EVENT DATE: 20240330
